FAERS Safety Report 23273183 (Version 1)
Quarter: 2023Q4

REPORT INFORMATION
  Report Type: Spontaneous
  Country: US (occurrence: US)
  Receive Date: 20231207
  Receipt Date: 20231207
  Transmission Date: 20240110
  Serious: No
  Sender: FDA-Public Use
  Company Number: US-MYLANLABS-2023M1127891

PATIENT
  Sex: Female
  Weight: 50.8 kg

DRUGS (1)
  1. XULANE [Suspect]
     Active Substance: ETHINYL ESTRADIOL\NORELGESTROMIN
     Indication: Hormone therapy
     Dosage: 150/35 MICROGRAM, QD
     Route: 062

REACTIONS (4)
  - Migraine [Recovered/Resolved]
  - Drug ineffective [Recovered/Resolved]
  - Product adhesion issue [Recovered/Resolved]
  - Product quality issue [Recovered/Resolved]
